FAERS Safety Report 5494335-1 (Version None)
Quarter: 2007Q4

REPORT INFORMATION
  Report Type: 
  Country: None (occurrence: None)
  Receive Date: 20071024
  Receipt Date: 20071012
  Transmission Date: 20080405
  Serious: Yes (Other)
  Sender: FDA-Public Use
  Company Number: US-BAYER-200713340BCC

PATIENT
  Age: 79 Year
  Sex: Female
  Weight: 56 kg

DRUGS (7)
  1. ONE A DAY WOMENS [Suspect]
     Indication: VITAMIN SUPPLEMENTATION
     Route: 048
     Dates: start: 20040101
  2. ONE A DAY WOMENS [Suspect]
     Route: 048
     Dates: start: 20070928
  3. ASPIRIN [Suspect]
     Indication: PAIN IN EXTREMITY
     Route: 048
     Dates: start: 20070928
  4. ASPIRIN [Suspect]
     Dosage: TOTAL DAILY DOSE: 325 MG  UNIT DOSE: 325 MG
     Route: 048
     Dates: start: 20020101
  5. SYNTHROID [Concomitant]
  6. FOSAMAX [Concomitant]
  7. VYTORIN [Concomitant]

REACTIONS (3)
  - INFLUENZA LIKE ILLNESS [None]
  - LYMPHADENOPATHY [None]
  - MALIGNANT MELANOMA [None]
